FAERS Safety Report 13574513 (Version 1)
Quarter: 2017Q2

REPORT INFORMATION
  Report Type: Spontaneous
  Country: FR (occurrence: FR)
  Receive Date: 20170523
  Receipt Date: 20170523
  Transmission Date: 20170830
  Serious: Yes (Hospitalization)
  Sender: FDA-Public Use
  Company Number: FR-PFIZER INC-2017221346

PATIENT
  Age: 73 Year
  Sex: Female

DRUGS (2)
  1. ATRACURIUM BESILATE [Suspect]
     Active Substance: ATRACURIUM BESYLATE
     Indication: COLONOSCOPY
     Dosage: 1 DF, UNK
     Route: 042
     Dates: start: 20170124, end: 20170124
  2. DEBRIDAT [Suspect]
     Active Substance: TRIMEBUTINE MALEATE
     Indication: COLONOSCOPY
     Dosage: 1 DF, UNK
     Route: 042
     Dates: start: 20170124, end: 20170124

REACTIONS (3)
  - Choking sensation [Recovered/Resolved]
  - Facial paralysis [Recovered/Resolved]
  - Wrong drug administered [Recovered/Resolved]

NARRATIVE: CASE EVENT DATE: 20170124
